FAERS Safety Report 7456010-3 (Version None)
Quarter: 2011Q2

REPORT INFORMATION
  Report Type: 
  Country: None (occurrence: None)
  Receive Date: 20110503
  Receipt Date: 20110421
  Transmission Date: 20111010
  Serious: Yes (Life-Threatening, Hospitalization)
  Sender: FDA-Public Use
  Company Number: FR-MERCK-1104FRA00137

PATIENT
  Age: 61 Year
  Sex: Female

DRUGS (11)
  1. COLCHICINE AND OPIUM, POWDERED AND TIEMONIUM METHYLSULFATE [Suspect]
     Indication: PSORIATIC ARTHROPATHY
     Route: 048
     Dates: start: 20110118, end: 20110122
  2. PHENYLBUTAZONE [Suspect]
     Route: 048
     Dates: end: 20110118
  3. BETAHISTINE HYDROCHLORIDE [Concomitant]
     Route: 065
  4. HYZAAR [Suspect]
     Route: 048
     Dates: end: 20110122
  5. FEBUXOSTAT [Suspect]
     Indication: PSORIATIC ARTHROPATHY
     Route: 048
     Dates: start: 20110118, end: 20110122
  6. CHOLECALCIFEROL [Concomitant]
     Route: 065
  7. BETAXOLOL HYDROCHLORIDE [Concomitant]
     Route: 065
  8. ACETAZOLAMIDE [Suspect]
     Route: 048
     Dates: end: 20110122
  9. ALLOPURINOL [Suspect]
     Route: 048
     Dates: end: 20110118
  10. FOLIC ACID [Concomitant]
     Route: 065
  11. PREGABALIN [Suspect]
     Route: 048
     Dates: end: 20110122

REACTIONS (2)
  - RENAL FAILURE ACUTE [None]
  - PANCYTOPENIA [None]
